FAERS Safety Report 18157423 (Version 2)
Quarter: 2020Q3

REPORT INFORMATION
  Report Type: Spontaneous
  Country: US (occurrence: US)
  Receive Date: 20200817
  Receipt Date: 20200929
  Transmission Date: 20201103
  Serious: No
  Sender: FDA-Public Use
  Company Number: US-PFIZER INC-2020018611

PATIENT
  Age: 3 Year
  Sex: Female
  Weight: 8.62 kg

DRUGS (1)
  1. GENOTROPIN [Suspect]
     Active Substance: SOMATROPIN
     Indication: ADRENAL INSUFFICIENCY
     Dosage: 0.3 MG, ONCE A DAY (0.3MG INJECTION AT NIGHT)
     Dates: start: 20191206

REACTIONS (2)
  - Device issue [Unknown]
  - Product dose omission issue [Unknown]
